FAERS Safety Report 14454053 (Version 1)
Quarter: 2018Q1

REPORT INFORMATION
  Report Type: Spontaneous
  Country: US (occurrence: US)
  Receive Date: 20180129
  Receipt Date: 20180129
  Transmission Date: 20180509
  Serious: No
  Sender: FDA-Public Use
  Company Number: US-PERRIGO-17US002515

PATIENT
  Age: 63 Year
  Sex: Female
  Weight: 63.39 kg

DRUGS (3)
  1. IBUPROFEN AND DIPHENHYDRAMINE CITRATE [Suspect]
     Active Substance: DIPHENHYDRAMINE CITRATE\IBUPROFEN
     Indication: INSOMNIA
     Dosage: ONE TABLET, SINGLE
     Route: 048
     Dates: start: 20170313, end: 20170313
  2. IBUPROFEN AND DIPHENHYDRAMINE CITRATE [Suspect]
     Active Substance: DIPHENHYDRAMINE CITRATE\IBUPROFEN
     Indication: PAIN
  3. ARMOUR THYROID [Concomitant]
     Active Substance: THYROID, PORCINE
     Indication: HYPOTHYROIDISM
     Dosage: UNK
     Route: 048

REACTIONS (10)
  - Psychomotor hyperactivity [Recovered/Resolved]
  - Dysarthria [Recovered/Resolved]
  - Feeling jittery [Recovered/Resolved]
  - Amnesia [Recovered/Resolved]
  - Amnesia [Recovered/Resolved]
  - Restlessness [Recovered/Resolved]
  - Blood pressure systolic increased [Recovered/Resolved]
  - Underdose [Recovered/Resolved]
  - Feeling abnormal [Recovered/Resolved]
  - Nervousness [Recovered/Resolved]

NARRATIVE: CASE EVENT DATE: 20170313
